FAERS Safety Report 4917322-8 (Version None)
Quarter: 2006Q1

REPORT INFORMATION
  Report Type: 
  Country: None (occurrence: None)
  Receive Date: 20060221
  Receipt Date: 20050713
  Transmission Date: 20060701
  Serious: Yes (Hospitalization)
  Sender: FDA-Public Use
  Company Number: US-MERCK-0507USA01776

PATIENT
  Age: 59 Year
  Sex: Male

DRUGS (2)
  1. VIOXX [Suspect]
     Route: 048
     Dates: start: 20000819, end: 20001020
  2. VIOXX [Suspect]
     Route: 048
     Dates: start: 20001101, end: 20030616

REACTIONS (15)
  - CHEST PAIN [None]
  - CORONARY ARTERY DISEASE [None]
  - CORONARY ARTERY STENOSIS [None]
  - DIAPHRAGMATIC DISORDER [None]
  - DYSPNOEA [None]
  - FALL [None]
  - HYPERLIPIDAEMIA [None]
  - INJECTION SITE INDURATION [None]
  - JOINT EFFUSION [None]
  - MUSCULOSKELETAL CHEST PAIN [None]
  - MUSCULOSKELETAL DISCOMFORT [None]
  - MYOCARDIAL ISCHAEMIA [None]
  - POST PROCEDURAL DISCOMFORT [None]
  - SCAN MYOCARDIAL PERFUSION ABNORMAL [None]
  - SINUS BRADYCARDIA [None]
